FAERS Safety Report 17293962 (Version 1)
Quarter: 2020Q1

REPORT INFORMATION
  Report Type: Spontaneous
  Country: US (occurrence: US)
  Receive Date: 20200120
  Receipt Date: 20200120
  Transmission Date: 20200409
  Serious: Yes (Other)
  Sender: FDA-Public Use
  Company Number: None

PATIENT
  Age: 55 Year
  Sex: Female
  Weight: 66.6 kg

DRUGS (4)
  1. HYDROCODONE [Concomitant]
     Active Substance: HYDROCODONE
  2. MELATONIN [Concomitant]
     Active Substance: MELATONIN
  3. EMGALITY [Suspect]
     Active Substance: GALCANEZUMAB-GNLM
     Indication: MIGRAINE
     Route: 030
     Dates: start: 20191124, end: 20191224
  4. BC (ASPIRIN\CAFFEINE) [Concomitant]
     Active Substance: ASPIRIN\CAFFEINE

REACTIONS (4)
  - Alopecia [None]
  - Nightmare [None]
  - Insomnia [None]
  - Hot flush [None]

NARRATIVE: CASE EVENT DATE: 20191224
